FAERS Safety Report 5634431-9 (Version None)
Quarter: 2008Q1

REPORT INFORMATION
  Report Type: 
  Country: None (occurrence: None)
  Receive Date: 20080131
  Receipt Date: 20061205
  Transmission Date: 20080703
  Serious: Yes (Other)
  Sender: FDA-Public Use
  Company Number: 150624USA

PATIENT
  Age: 26 Year
  Sex: Female

DRUGS (1)
  1. COPAXONE [Suspect]
     Indication: MULTIPLE SCLEROSIS
     Dosage: 20 MG (20 MG, 1 IN 1 D), SUBCUTANEOUS
     Route: 058
     Dates: start: 20061001

REACTIONS (6)
  - CHEST DISCOMFORT [None]
  - CONVULSION [None]
  - FLUSHING [None]
  - LOSS OF CONSCIOUSNESS [None]
  - MYOCLONUS [None]
  - NAUSEA [None]
